FAERS Safety Report 9494636 (Version 1)
Quarter: 2013Q3

REPORT INFORMATION
  Report Type: Spontaneous
  Country: US (occurrence: None)
  Receive Date: 20130830
  Receipt Date: 20130830
  Transmission Date: 20140515
  Serious: No
  Sender: FDA-Public Use
  Company Number: None

PATIENT
  Age: 70 Year
  Sex: Male
  Weight: 66.68 kg

DRUGS (9)
  1. SULFAMETHOXAZOLE AND TRIMETHOPRIM DOUBLE STRENGTH [Suspect]
     Indication: INFECTION PROPHYLAXIS
     Dosage: BY MOUTH
     Dates: start: 20130613, end: 20130617
  2. LIMBREL [Suspect]
  3. NIACIN [Concomitant]
  4. RED YEAST RICE [Concomitant]
  5. D-3 [Concomitant]
  6. FEVERFEW [Concomitant]
  7. POTASSIUM [Concomitant]
  8. B-12 [Concomitant]
  9. MAGNESIUM [Concomitant]

REACTIONS (8)
  - Skin discolouration [None]
  - Skin irritation [None]
  - Skin exfoliation [None]
  - Wound secretion [None]
  - Penile haemorrhage [None]
  - Burning sensation [None]
  - Rash [None]
  - Dry skin [None]
